FAERS Safety Report 11510389 (Version 1)
Quarter: 2015Q3

REPORT INFORMATION
  Report Type: Spontaneous
  Country: US (occurrence: US)
  Receive Date: 20150915
  Receipt Date: 20150915
  Transmission Date: 20151125
  Serious: No
  Sender: FDA-Public Use
  Company Number: US-JNJFOC-20150808100

PATIENT
  Age: 48 Year
  Sex: Male
  Weight: 47.63 kg

DRUGS (1)
  1. CHILDRENS TYLENOL [Suspect]
     Active Substance: ACETAMINOPHEN
     Indication: PRODUCT USED FOR UNKNOWN INDICATION
     Dosage: 2.5 TEASPOONS, EVERY 6 HOURS WHEN NEEDED
     Route: 048

REACTIONS (2)
  - Drug prescribing error [Unknown]
  - Product packaging issue [Unknown]
